FAERS Safety Report 7592147-6 (Version None)
Quarter: 2011Q3

REPORT INFORMATION
  Report Type: 
  Country: None (occurrence: None)
  Receive Date: 20110705
  Receipt Date: 20110705
  Transmission Date: 20111222
  Serious: No
  Sender: FDA-Public Use
  Company Number: None

PATIENT
  Age: 50 Year
  Sex: Male
  Weight: 102.0593 kg

DRUGS (2)
  1. LORAZEPAM [Suspect]
     Indication: STRESS AT WORK
     Dosage: ONE TABLET TWICE A DAY PO
     Route: 048
  2. ATIVAN [Concomitant]

REACTIONS (1)
  - DIZZINESS [None]
